FAERS Safety Report 12183980 (Version 2)
Quarter: 2016Q1

REPORT INFORMATION
  Report Type: Spontaneous
  Country: US (occurrence: US)
  Receive Date: 20160316
  Receipt Date: 20160328
  Transmission Date: 20160526
  Serious: No
  Sender: FDA-Public Use
  Company Number: US-GLAXOSMITHKLINE-US2016037064

PATIENT
  Age: 57 Year
  Sex: Female

DRUGS (2)
  1. ALLI [Suspect]
     Active Substance: ORLISTAT
     Indication: WEIGHT LOSS DIET
     Dosage: UNK
     Route: 048
  2. ALLI [Suspect]
     Active Substance: ORLISTAT
     Dosage: UNK, 3-4 PILLS
     Route: 048
     Dates: start: 201603

REACTIONS (2)
  - Abdominal pain upper [Recovered/Resolved]
  - Ill-defined disorder [Recovered/Resolved]
